FAERS Safety Report 7705979-8 (Version None)
Quarter: 2011Q3

REPORT INFORMATION
  Report Type: 
  Country: None (occurrence: None)
  Receive Date: 20110824
  Receipt Date: 20110816
  Transmission Date: 20111222
  Serious: Yes (Hospitalization)
  Sender: FDA-Public Use
  Company Number: PHHY2011CH73436

PATIENT
  Age: 45 Year
  Sex: Male

DRUGS (3)
  1. RITALIN [Suspect]
     Dosage: 200 MG,DAILY
     Dates: start: 20040101, end: 20110801
  2. METHADONE HYDROCHLORIDE [Concomitant]
     Dosage: 50 MG, DAILY
  3. CLONAZEPAM [Concomitant]
     Dosage: 15 MG, DAILY

REACTIONS (4)
  - OEDEMA PERIPHERAL [None]
  - DRUG ABUSE [None]
  - PSYCHOTIC DISORDER [None]
  - HALLUCINATION [None]
